FAERS Safety Report 5102456-8 (Version None)
Quarter: 2006Q3

REPORT INFORMATION
  Report Type: 
  Country: None (occurrence: None)
  Receive Date: 20060731
  Receipt Date: 20060622
  Transmission Date: 20061208
  Serious: No
  Sender: FDA-Public Use
  Company Number: 2006PV016226

PATIENT
  Age: 70 Year
  Sex: Female
  Weight: 130.1823 kg

DRUGS (4)
  1. BYETTA [Suspect]
     Indication: DIABETES MELLITUS NON-INSULIN-DEPENDENT
     Dosage: 5 MCG;BID;SC
     Route: 058
     Dates: start: 20060612
  2. METFORMIN HCL [Concomitant]
  3. AMARYL [Concomitant]
  4. ACTOS /USA/ [Concomitant]

REACTIONS (7)
  - ABDOMINAL PAIN [None]
  - CONTUSION [None]
  - DIARRHOEA [None]
  - DIZZINESS [None]
  - FALL [None]
  - PAIN IN EXTREMITY [None]
  - WEIGHT DECREASED [None]
